FAERS Safety Report 16638983 (Version 1)
Quarter: 2019Q3

REPORT INFORMATION
  Report Type: Spontaneous
  Country: FR (occurrence: FR)
  Receive Date: 20190726
  Receipt Date: 20190726
  Transmission Date: 20191004
  Serious: Yes (Hospitalization)
  Sender: FDA-Public Use
  Company Number: FR-009507513-1907FRA013178

PATIENT
  Age: 11 Year
  Sex: Male
  Weight: 34.2 kg

DRUGS (1)
  1. AERIUS (DESLORATADINE) [Suspect]
     Active Substance: DESLORATADINE
     Indication: OTITIS MEDIA
     Dosage: 1 DOSAGE FORM, QD
     Route: 048
     Dates: start: 201902, end: 201904

REACTIONS (2)
  - Abnormal behaviour [Recovered/Resolved]
  - Hallucination [Recovered/Resolved]

NARRATIVE: CASE EVENT DATE: 201903
